FAERS Safety Report 11619857 (Version 1)
Quarter: 2015Q4

REPORT INFORMATION
  Report Type: Spontaneous
  Country: US (occurrence: US)
  Receive Date: 20151012
  Receipt Date: 20151012
  Transmission Date: 20160304
  Serious: No
  Sender: FDA-Public Use
  Company Number: US-PFIZER INC-2015309748

PATIENT
  Sex: Female

DRUGS (3)
  1. ATORVASTATIN CALCIUM. [Suspect]
     Active Substance: ATORVASTATIN CALCIUM
     Indication: BLOOD CHOLESTEROL INCREASED
     Dosage: 20 MG, 1X/DAY (OVAL WHITE PILL ONCE A DAY)
  2. CHANTIX [Suspect]
     Active Substance: VARENICLINE TARTRATE
     Indication: SMOKING CESSATION THERAPY
     Dosage: 0.5 DF (0.5 OVAL TABLET) , UNK
  3. LEVAQUIN [Concomitant]
     Active Substance: LEVOFLOXACIN
     Dosage: 750, UNK

REACTIONS (5)
  - Muscle spasms [Unknown]
  - Muscle twitching [Unknown]
  - Urinary tract infection [Unknown]
  - Feeling abnormal [Unknown]
  - Speech disorder [Unknown]
